FAERS Safety Report 25880858 (Version 1)
Quarter: 2025Q4

REPORT INFORMATION
  Report Type: Spontaneous
  Country: CH (occurrence: CH)
  Receive Date: 20251004
  Receipt Date: 20251004
  Transmission Date: 20260117
  Serious: Yes (Death, Other)
  Sender: MACLEODS
  Company Number: CH-MLMSERVICE-20250917-PI647741-00039-1

PATIENT

DRUGS (5)
  1. ACYCLOVIR [Suspect]
     Active Substance: ACYCLOVIR
     Indication: Herpes simplex
     Route: 042
  2. ACYCLOVIR [Suspect]
     Active Substance: ACYCLOVIR
     Indication: Infection
  3. ACYCLOVIR [Suspect]
     Active Substance: ACYCLOVIR
     Indication: Infection
  4. RUXOLITINIB [Concomitant]
     Active Substance: RUXOLITINIB
     Dosage: LONG-TERM, THEN REDUCED
     Route: 065
  5. RUXOLITINIB [Concomitant]
     Active Substance: RUXOLITINIB

REACTIONS (3)
  - Pneumonia [Fatal]
  - Neurological symptom [Fatal]
  - Acute kidney injury [Unknown]
